FAERS Safety Report 22264921 (Version 1)
Quarter: 2023Q2

REPORT INFORMATION
  Report Type: Spontaneous
  Country: US (occurrence: None)
  Receive Date: 20230425
  Receipt Date: 20230425
  Transmission Date: 20230722
  Serious: No
  Sender: FDA-Public Use
  Company Number: None

PATIENT

DRUGS (1)
  1. FRESHMINT [Suspect]
     Active Substance: SODIUM FLUORIDE

REACTIONS (6)
  - Throat irritation [None]
  - Dry mouth [None]
  - Aphasia [None]
  - Mouth injury [None]
  - Pulmonary toxicity [None]
  - Product use complaint [None]
